FAERS Safety Report 21756104 (Version 4)
Quarter: 2023Q4

REPORT INFORMATION
  Report Type: Spontaneous
  Country: ES (occurrence: ES)
  Receive Date: 20221220
  Receipt Date: 20231107
  Transmission Date: 20240110
  Serious: Yes (Other)
  Sender: FDA-Public Use
  Company Number: ES-AMGEN-ESPSP2022211454

PATIENT
  Age: 43 Year
  Sex: Female

DRUGS (8)
  1. LENALIDOMIDE [Suspect]
     Active Substance: LENALIDOMIDE
     Indication: Plasma cell myeloma
     Dosage: INDUCTION CHEMOTHERAPY WITH FIVE CYCLES, CYCLIC
     Route: 065
  2. DEXAMETHASONE [Suspect]
     Active Substance: DEXAMETHASONE
     Indication: Plasma cell myeloma
     Dosage: INDUCTION CHEMOTHERAPY WITH TWO CYCLES, CYCLIC
     Route: 065
  3. BORTEZOMIB [Suspect]
     Active Substance: BORTEZOMIB
     Indication: Plasma cell myeloma
     Dosage: UNK, INDUCTION CHEMOTHERAPY WITH TWO CYCLES
     Route: 065
  4. CYCLOPHOSPHAMIDE [Suspect]
     Active Substance: CYCLOPHOSPHAMIDE
     Indication: Plasma cell myeloma
     Dosage: UNK, INDUCTION CHEMOTHERAPY WITH TWO CYCLES
     Route: 065
  5. CARFILZOMIB [Suspect]
     Active Substance: CARFILZOMIB
     Indication: Plasma cell myeloma
     Dosage: INDUCTION CHEMOTHERAPY WITH FIVE CYCLES, CYCLIC, UNK, INDUCTION CHEMOTHERAPY WITH FIVE CYCLES
     Route: 065
  6. BUSULFAN [Suspect]
     Active Substance: BUSULFAN
     Indication: Bone marrow conditioning regimen
     Dosage: UNK, BUMEL CONDITIONING
     Route: 065
  7. MELPHALAN [Suspect]
     Active Substance: MELPHALAN
     Indication: Bone marrow conditioning regimen
     Dosage: UNK, BUMEL CONDITIONING
     Route: 065
  8. MELPHALAN [Suspect]
     Active Substance: MELPHALAN
     Dosage: 200 MG/M2 (MEL200)
     Route: 065

REACTIONS (4)
  - Venoocclusive liver disease [Recovered/Resolved]
  - Plasma cell myeloma [Unknown]
  - Malignant neoplasm progression [Unknown]
  - Therapy partial responder [Unknown]
